FAERS Safety Report 9492176 (Version 1)
Quarter: 2013Q3

REPORT INFORMATION
  Report Type: Spontaneous
  Country: DE (occurrence: DE)
  Receive Date: 20130830
  Receipt Date: 20130830
  Transmission Date: 20140515
  Serious: Yes (Other)
  Sender: FDA-Public Use
  Company Number: DE-GLAXOSMITHKLINE-D0080925A

PATIENT
  Sex: Female

DRUGS (1)
  1. BENLYSTA [Suspect]
     Dosage: 800MG UNKNOWN
     Route: 042

REACTIONS (1)
  - Abscess [Unknown]
